FAERS Safety Report 22820149 (Version 5)
Quarter: 2023Q4

REPORT INFORMATION
  Report Type: Spontaneous
  Country: CN (occurrence: CN)
  Receive Date: 20230814
  Receipt Date: 20231205
  Transmission Date: 20240110
  Serious: Yes (Hospitalization)
  Sender: FDA-Public Use
  Company Number: CN-PUMA BIOTECHNOLOGY, INC.-2023-PUM-CN001169

PATIENT

DRUGS (4)
  1. NERLYNX [Suspect]
     Active Substance: NERATINIB
     Indication: Breast cancer
     Dosage: 6 TABLET, DAILY (240MG)
     Route: 048
     Dates: start: 20230717, end: 20230728
  2. LOPERAMIDE HYDROCHLORIDE [Suspect]
     Active Substance: LOPERAMIDE HYDROCHLORIDE
     Indication: Prophylaxis against diarrhoea
     Dosage: UNK, 3 TIMES DAILY
     Dates: start: 20230717, end: 20230720
  3. LOPERAMIDE HYDROCHLORIDE [Suspect]
     Active Substance: LOPERAMIDE HYDROCHLORIDE
     Dosage: UNK, 2 TIMES DAILY
     Dates: start: 20230721, end: 20230728
  4. EXEMESTANE [Concomitant]
     Active Substance: EXEMESTANE
     Indication: Product used for unknown indication
     Dosage: 1 DF, DAILY
     Route: 048
     Dates: start: 202212

REACTIONS (9)
  - Syncope [Recovered/Resolved]
  - Shock [Recovered/Resolved]
  - Hypokalaemia [Recovered/Resolved]
  - Rash [Recovered/Resolved]
  - Diarrhoea [Recovered/Resolved]
  - Blood creatinine increased [Recovered/Resolved]
  - Constipation [Recovered/Resolved]
  - Decreased appetite [Recovered/Resolved]
  - Dehydration [Recovered/Resolved]

NARRATIVE: CASE EVENT DATE: 20230101
